FAERS Safety Report 14363525 (Version 1)
Quarter: 2018Q1

REPORT INFORMATION
  Report Type: Report from Study
  Country: IT (occurrence: IT)
  Receive Date: 20180108
  Receipt Date: 20180108
  Transmission Date: 20180509
  Serious: Yes (Other)
  Sender: FDA-Public Use
  Company Number: IT-TEVA-2018-IT-843228

PATIENT
  Sex: Female

DRUGS (3)
  1. GABAPENTIN PFIZER [Concomitant]
     Active Substance: GABAPENTIN
     Indication: HEADACHE
     Dosage: 200 MILLIGRAM DAILY; 2 TABLETS EVERY EVENING
     Route: 048
     Dates: start: 201710
  2. GABAPENTIN PFIZER [Concomitant]
     Active Substance: GABAPENTIN
     Indication: BACK PAIN
  3. COPAXONE [Suspect]
     Active Substance: GLATIRAMER ACETATE
     Indication: MULTIPLE SCLEROSIS
     Route: 058
     Dates: start: 201710

REACTIONS (5)
  - Injection site pain [Not Recovered/Not Resolved]
  - Injection site urticaria [Not Recovered/Not Resolved]
  - Injection site erythema [Not Recovered/Not Resolved]
  - Chills [Not Recovered/Not Resolved]
  - Musculoskeletal stiffness [Not Recovered/Not Resolved]
